FAERS Safety Report 20166420 (Version 1)
Quarter: 2021Q4

REPORT INFORMATION
  Report Type: Spontaneous
  Country: GB (occurrence: GB)
  Receive Date: 20211209
  Receipt Date: 20211209
  Transmission Date: 20220303
  Serious: Yes (Other)
  Sender: FDA-Public Use
  Company Number: GB-TEVA-2021-GB-1987072

PATIENT
  Age: 76 Year
  Sex: Female

DRUGS (3)
  1. PROGESTERONE [Suspect]
     Active Substance: PROGESTERONE
     Indication: Hysterectomy
     Dosage: 1200 MILLIGRAM DAILY;
     Route: 065
     Dates: end: 20210330
  2. PROGESTERONE [Suspect]
     Active Substance: PROGESTERONE
     Dosage: 800 MILLIGRAM DAILY;
     Route: 065
     Dates: end: 20210330
  3. PROGESTERONE [Suspect]
     Active Substance: PROGESTERONE
     Route: 065
     Dates: end: 20210330

REACTIONS (4)
  - Genital abscess [Unknown]
  - Product use issue [Unknown]
  - Off label use [Unknown]
  - Overdose [Unknown]
